FAERS Safety Report 13574969 (Version 2)
Quarter: 2017Q2

REPORT INFORMATION
  Report Type: Report from Study
  Country: US (occurrence: US)
  Receive Date: 20170523
  Receipt Date: 20170601
  Transmission Date: 20170830
  Serious: Yes (Hospitalization, Other)
  Sender: FDA-Public Use
  Company Number: US-GILEAD-2017-0273964

PATIENT
  Age: 45 Year
  Sex: Female

DRUGS (9)
  1. TADALAFIL [Concomitant]
     Active Substance: TADALAFIL
  2. METOPROLOL. [Concomitant]
     Active Substance: METOPROLOL
  3. SPIRONOLACTONE. [Concomitant]
     Active Substance: SPIRONOLACTONE
  4. PROAIR HFA [Concomitant]
     Active Substance: ALBUTEROL SULFATE
  5. AMLODIPINE [Concomitant]
     Active Substance: AMLODIPINE BESYLATE
  6. FUROSEMIDE. [Concomitant]
     Active Substance: FUROSEMIDE
  7. AMBRISENTAN [Suspect]
     Active Substance: AMBRISENTAN
     Indication: PRODUCT USED FOR UNKNOWN INDICATION
     Dosage: 10 MG, QD
     Route: 065
  8. DIGOXIN. [Concomitant]
     Active Substance: DIGOXIN
  9. ESCITALOPRAM [Concomitant]
     Active Substance: ESCITALOPRAM OXALATE

REACTIONS (3)
  - Abdominal mass [Unknown]
  - Abdominal distension [Not Recovered/Not Resolved]
  - Cardiac failure congestive [Unknown]
